FAERS Safety Report 10199299 (Version 1)
Quarter: 2014Q2

REPORT INFORMATION
  Report Type: Spontaneous
  Country: US (occurrence: None)
  Receive Date: 20140523
  Receipt Date: 20140523
  Transmission Date: 20141212
  Serious: No
  Sender: FDA-Public Use
  Company Number: None

PATIENT
  Age: 39 Year
  Sex: Female
  Weight: 49.9 kg

DRUGS (1)
  1. PAROXETINE 10 MG AUROBINDO AUROLIFE [Suspect]
     Indication: DRUG THERAPY
     Route: 048
     Dates: start: 20140408, end: 20140412

REACTIONS (1)
  - Visual acuity reduced [None]
